FAERS Safety Report 12406493 (Version 1)
Quarter: 2016Q2

REPORT INFORMATION
  Report Type: Other
  Country: PT (occurrence: PT)
  Receive Date: 20160526
  Receipt Date: 20160526
  Transmission Date: 20160815
  Serious: Yes (Hospitalization, Other)
  Sender: FDA-Public Use
  Company Number: PT-ACTELION-A-CH2016-136543

PATIENT
  Age: 44 Year
  Sex: Male

DRUGS (1)
  1. TRACLEER [Suspect]
     Active Substance: BOSENTAN
     Indication: PULMONARY ARTERIAL HYPERTENSION
     Dosage: UNK
     Route: 048

REACTIONS (13)
  - Angina unstable [Recovered/Resolved]
  - Ejection fraction decreased [Recovered/Resolved]
  - Dyspnoea [Unknown]
  - Vascular compression [Recovered/Resolved]
  - Pulmonary artery dilatation [Unknown]
  - Ischaemia [Recovered/Resolved]
  - Right-to-left cardiac shunt [Recovered/Resolved]
  - Electrocardiogram ST segment elevation [Recovered/Resolved]
  - Ventricular hypokinesia [Recovered/Resolved]
  - Troponin I increased [Recovered/Resolved]
  - Chest pain [Unknown]
  - Electrocardiogram ST segment depression [Recovered/Resolved]
  - Coronary arterial stent insertion [Unknown]
